FAERS Safety Report 16955111 (Version 1)
Quarter: 2019Q4

REPORT INFORMATION
  Report Type: Spontaneous
  Country: US (occurrence: US)
  Receive Date: 20191024
  Receipt Date: 20191024
  Transmission Date: 20200122
  Serious: Yes (Other)
  Sender: FDA-Public Use
  Company Number: US-EMD SERONO-9124182

PATIENT
  Sex: Female

DRUGS (5)
  1. CETROTIDE [Suspect]
     Active Substance: CETRORELIX ACETATE
     Indication: PRODUCT USED FOR UNKNOWN INDICATION
     Dosage: DAY 8 TO 10 (3 DAYS)
  2. GONAL-F [Suspect]
     Active Substance: FOLLITROPIN
     Indication: PRODUCT USED FOR UNKNOWN INDICATION
     Dosage: UNKNOWN DOSAGE
  3. OVITRELLE [Suspect]
     Active Substance: CHORIOGONADOTROPIN ALFA
     Indication: PRODUCT USED FOR UNKNOWN INDICATION
     Dosage: UNSPECIFIED MICRODOSE
  4. LEUPROLIDE                         /00726901/ [Suspect]
     Active Substance: LEUPROLIDE
     Indication: PRODUCT USED FOR UNKNOWN INDICATION
     Dosage: 80 UNITS (UNSPECIFIED FREQUENCY)
  5. GONAL-F [Suspect]
     Active Substance: FOLLITROPIN
     Dosage: DOSAGE REDUCED (UNSPECIFIED)

REACTIONS (2)
  - Ovarian hyperstimulation syndrome [Unknown]
  - Blood oestrogen increased [Unknown]
